FAERS Safety Report 6414959-4 (Version None)
Quarter: 2009Q4

REPORT INFORMATION
  Report Type: 
  Country: None (occurrence: None)
  Receive Date: 20091026
  Receipt Date: 20090331
  Transmission Date: 20100525
  Serious: No
  Sender: FDA-Public Use
  Company Number: US-ABBOTT-09P-163-0565977-00

PATIENT
  Age: 35 Year
  Sex: Female

DRUGS (4)
  1. LUPRON DEPOT [Suspect]
     Indication: CYST
     Route: 050
     Dates: start: 20090101
  2. LUPRON DEPOT [Suspect]
     Indication: ENDOMETRIOSIS
  3. CALCIUM +VIT D [Concomitant]
     Indication: FAMILIAL RISK FACTOR
     Dosage: 1 IN 24 HRS DAILY
     Route: 048
  4. OVER THE COUNTER ANTIHISTAMINES [Concomitant]
     Indication: HYPERSENSITIVITY

REACTIONS (2)
  - RASH GENERALISED [None]
  - URTICARIA [None]
